FAERS Safety Report 8484959-1 (Version None)
Quarter: 2012Q3

REPORT INFORMATION
  Report Type: 
  Country: None (occurrence: None)
  Receive Date: 20120703
  Receipt Date: 20120628
  Transmission Date: 20120928
  Serious: No
  Sender: FDA-Public Use
  Company Number: US-PFIZER INC-2012155873

PATIENT
  Sex: Male

DRUGS (2)
  1. FLAGYL [Suspect]
     Dosage: UNK
     Dates: start: 20120619
  2. FLAGYL [Suspect]
     Dosage: UNK

REACTIONS (6)
  - CONFUSIONAL STATE [None]
  - VERTIGO [None]
  - DYSURIA [None]
  - COORDINATION ABNORMAL [None]
  - ANXIETY [None]
  - INSOMNIA [None]
